FAERS Safety Report 9322532 (Version 1)
Quarter: 2013Q2

REPORT INFORMATION
  Report Type: Report from Study
  Country: DE (occurrence: DE)
  Receive Date: 20130531
  Receipt Date: 20130531
  Transmission Date: 20140414
  Serious: Yes (Hospitalization)
  Sender: FDA-Public Use
  Company Number: DE-ABBOTT-13P-062-1096486-00

PATIENT
  Age: 46 Year
  Sex: Male
  Weight: 78 kg

DRUGS (5)
  1. HUMIRA [Suspect]
     Indication: CROHN^S DISEASE
     Route: 058
     Dates: start: 20111111, end: 20130118
  2. HUMIRA [Suspect]
     Route: 058
     Dates: start: 20130315, end: 20130415
  3. HUMIRA [Suspect]
     Route: 058
     Dates: start: 20130524
  4. AZATHIOPRINE [Concomitant]
     Indication: PRODUCT USED FOR UNKNOWN INDICATION
     Dates: start: 201001, end: 20130422
  5. PANTOPRAZOLE [Concomitant]
     Indication: PRODUCT USED FOR UNKNOWN INDICATION
     Dates: start: 20130122

REACTIONS (4)
  - Ileal fistula [Recovered/Resolved]
  - Postoperative abscess [Recovered/Resolved]
  - Abscess [Recovered/Resolved]
  - Enterocutaneous fistula [Recovered/Resolved]
